FAERS Safety Report 8572540-5 (Version None)
Quarter: 2012Q3

REPORT INFORMATION
  Report Type: 
  Country: None (occurrence: None)
  Receive Date: 20120806
  Receipt Date: 20120726
  Transmission Date: 20120928
  Serious: Yes (Other)
  Sender: FDA-Public Use
  Company Number: DE-ASTRAZENECA-2012SE53517

PATIENT
  Age: 69 Year
  Sex: Male

DRUGS (3)
  1. SEROQUEL XR [Suspect]
     Route: 048
  2. MELPERON [Concomitant]
  3. MIRTAZAPINE [Concomitant]

REACTIONS (1)
  - ATRIAL FIBRILLATION [None]
